FAERS Safety Report 14383582 (Version 1)
Quarter: 2018Q1

REPORT INFORMATION
  Report Type: Report from Study
  Country: US (occurrence: US)
  Receive Date: 20180115
  Receipt Date: 20180115
  Transmission Date: 20180509
  Serious: Yes (Other)
  Sender: FDA-Public Use
  Company Number: US-AMGEN-USASL2018004385

PATIENT
  Sex: Female

DRUGS (1)
  1. ENBREL [Suspect]
     Active Substance: ETANERCEPT
     Indication: RHEUMATOID ARTHRITIS
     Dosage: 50 MG, QWK
     Route: 065

REACTIONS (7)
  - Fall [Unknown]
  - Oral surgery [Unknown]
  - Thyroid disorder [Unknown]
  - Hip arthroplasty [Unknown]
  - Hepatic enzyme increased [Unknown]
  - Foot operation [Unknown]
  - Knee arthroplasty [Unknown]
